FAERS Safety Report 11667584 (Version 1)
Quarter: 2015Q4

REPORT INFORMATION
  Report Type: Spontaneous
  Country: US (occurrence: US)
  Receive Date: 20151027
  Receipt Date: 20151027
  Transmission Date: 20160304
  Serious: No
  Sender: FDA-Public Use
  Company Number: US-ELI_LILLY_AND_COMPANY-US201002007020

PATIENT
  Age: 76 Year
  Sex: Female
  Weight: 47.62 kg

DRUGS (6)
  1. FORTEO [Suspect]
     Active Substance: TERIPARATIDE
     Dosage: UNK, UNKNOWN
     Route: 065
  2. HYZAAR [Concomitant]
     Active Substance: HYDROCHLOROTHIAZIDE\LOSARTAN POTASSIUM
  3. CELEBREX [Concomitant]
     Active Substance: CELECOXIB
  4. ZICAM COLD REMEDY [Concomitant]
     Active Substance: ZINC ACETATE\ZINC GLUCONATE
     Dosage: UNK, OTHER
     Dates: start: 20090301
  5. VYTORIN [Concomitant]
     Active Substance: EZETIMIBE\SIMVASTATIN
  6. PLAVIX [Concomitant]
     Active Substance: CLOPIDOGREL BISULFATE

REACTIONS (2)
  - Ageusia [Recovering/Resolving]
  - Anosmia [Recovering/Resolving]

NARRATIVE: CASE EVENT DATE: 2009
